FAERS Safety Report 17179526 (Version 2)
Quarter: 2020Q1

REPORT INFORMATION
  Report Type: Spontaneous
  Country: AR (occurrence: AR)
  Receive Date: 20191220
  Receipt Date: 20200110
  Transmission Date: 20200409
  Serious: Yes (Hospitalization, Other)
  Sender: FDA-Public Use
  Company Number: AR-AMGEN-ARGSP2019136936

PATIENT
  Age: 71 Year
  Sex: Female

DRUGS (3)
  1. PANTOCAS [Concomitant]
     Dosage: UNK, QD
  2. ARTRAIT [METHOTREXATE SODIUM] [Concomitant]
     Dosage: UNK UNK, QD
  3. ENBREL [Suspect]
     Active Substance: ETANERCEPT
     Indication: RHEUMATOID ARTHRITIS
     Dosage: 50 MILLIGRAM, QWK
     Route: 065
     Dates: start: 20140311, end: 201910

REACTIONS (6)
  - Dysstasia [Not Recovered/Not Resolved]
  - Herpes virus infection [Recovering/Resolving]
  - Fungal infection [Unknown]
  - Pain [Unknown]
  - Osteoarthritis [Recovering/Resolving]
  - Musculoskeletal disorder [Unknown]

NARRATIVE: CASE EVENT DATE: 201808
